FAERS Safety Report 8421245-X (Version None)
Quarter: 2012Q2

REPORT INFORMATION
  Report Type: 
  Country: None (occurrence: None)
  Receive Date: 20120608
  Receipt Date: 20120530
  Transmission Date: 20120825
  Serious: Yes (Hospitalization)
  Sender: FDA-Public Use
  Company Number: IT-JNJFOC-20120509475

PATIENT
  Sex: Female

DRUGS (5)
  1. HALOPERIDOL [Suspect]
     Indication: PRODUCT USED FOR UNKNOWN INDICATION
     Route: 048
     Dates: start: 20120505, end: 20120506
  2. ASPIRIN [Concomitant]
     Indication: PRODUCT USED FOR UNKNOWN INDICATION
     Dosage: FOR FIVE YEARS
     Route: 048
     Dates: start: 20070101
  3. IRBESARTAN AND HYDROCHLOROTHIAZIDE [Concomitant]
     Indication: PRODUCT USED FOR UNKNOWN INDICATION
     Dosage: FOR THREE YEARS
     Route: 048
     Dates: start: 20090101
  4. LORAZEPAM [Concomitant]
     Indication: PRODUCT USED FOR UNKNOWN INDICATION
     Dosage: FOR THREE YEARS
     Route: 048
     Dates: start: 20090101
  5. SEROQUEL [Concomitant]
     Indication: PRODUCT USED FOR UNKNOWN INDICATION
     Dosage: FOR THREE MONTHS
     Route: 048
     Dates: start: 20120201

REACTIONS (3)
  - SOPOR [None]
  - BRADYKINESIA [None]
  - BRADYPHRENIA [None]
